FAERS Safety Report 12733817 (Version 1)
Quarter: 2016Q3

REPORT INFORMATION
  Report Type: Spontaneous
  Country: JP (occurrence: JP)
  Receive Date: 20160912
  Receipt Date: 20160912
  Transmission Date: 20161109
  Serious: Yes (Death, Other)
  Sender: FDA-Public Use
  Company Number: JP-ROCHE-1828260

PATIENT
  Age: 7 Decade
  Sex: Male

DRUGS (2)
  1. PROGRAF [Suspect]
     Active Substance: TACROLIMUS\TACROLIMUS ANHYDROUS
     Indication: PRODUCT USED FOR UNKNOWN INDICATION
     Dosage: DOSAGE IS UNCERTAIN.
     Route: 065
  2. CELLCEPT [Suspect]
     Active Substance: MYCOPHENOLATE MOFETIL\MYCOPHENOLATE MOFETIL HYDROCHLORIDE
     Indication: LUPUS NEPHRITIS
     Dosage: 1000-1500MG (AMOUNT OF 1 ONCE ADMINISTRATION)?THE FRACTIONATION DOSE FREQUENCY IS UNCERTAIN. ?DOSE
     Route: 048
     Dates: start: 201601

REACTIONS (2)
  - Malignant ascites [Unknown]
  - Pancreatic carcinoma [Fatal]
